FAERS Safety Report 21268562 (Version 1)
Quarter: 2022Q3

REPORT INFORMATION
  Report Type: Other
  Country: GB (occurrence: GB)
  Receive Date: 20220830
  Receipt Date: 20220830
  Transmission Date: 20221027
  Serious: Yes (Other)
  Sender: FDA-Public Use
  Company Number: GB-MHRA-MED-202208201457127260-PCSTM

PATIENT
  Age: 40 Year
  Sex: Female
  Weight: 57 kg

DRUGS (2)
  1. SERTRALINE [Suspect]
     Active Substance: SERTRALINE HYDROCHLORIDE
     Indication: Adverse drug reaction
     Dosage: 100 MG, (ONCE A DAY IN MORNING), TRYING TO REDUCE DOSAGE VERY SLOWLY
     Route: 065
     Dates: end: 20220504
  2. SERTRALINE [Suspect]
     Active Substance: SERTRALINE HYDROCHLORIDE
     Indication: Perinatal depression

REACTIONS (2)
  - Electric shock sensation [Recovered/Resolved]
  - Maternal exposure during breast feeding [Unknown]
